FAERS Safety Report 13014738 (Version 1)
Quarter: 2016Q4

REPORT INFORMATION
  Report Type: Spontaneous
  Country: US (occurrence: US)
  Receive Date: 20161209
  Receipt Date: 20161209
  Transmission Date: 20170207
  Serious: No
  Sender: FDA-Public Use
  Company Number: US-CHIESI USA INC.-US-2016CHI000721

PATIENT

DRUGS (1)
  1. BETHKIS [Suspect]
     Active Substance: TOBRAMYCIN
     Indication: PRODUCT USED FOR UNKNOWN INDICATION
     Dosage: UNK, 300 MG IN 4 ML
     Dates: start: 201508

REACTIONS (3)
  - Aphonia [Unknown]
  - Ill-defined disorder [Unknown]
  - Laryngitis [Unknown]

NARRATIVE: CASE EVENT DATE: 201508
